FAERS Safety Report 17649965 (Version 1)
Quarter: 2020Q2

REPORT INFORMATION
  Report Type: Spontaneous
  Country: US (occurrence: US)
  Receive Date: 20200409
  Receipt Date: 20200409
  Transmission Date: 20200713
  Serious: Yes (Other)
  Sender: FDA-Public Use
  Company Number: US-ALLERGAN-1931262US

PATIENT
  Sex: Female

DRUGS (1)
  1. LILETTA [Suspect]
     Active Substance: LEVONORGESTREL
     Indication: CONTRACEPTION
     Dosage: 52 MG, SINGLE
     Route: 015
     Dates: start: 20190611, end: 20190717

REACTIONS (3)
  - Device dislocation [Recovered/Resolved]
  - Uterine spasm [Unknown]
  - Discomfort [Unknown]

NARRATIVE: CASE EVENT DATE: 20190611
